FAERS Safety Report 6538515-2 (Version None)
Quarter: 2010Q1

REPORT INFORMATION
  Report Type: 
  Country: None (occurrence: None)
  Receive Date: 20100114
  Receipt Date: 20100105
  Transmission Date: 20100710
  Serious: Yes (Hospitalization)
  Sender: FDA-Public Use
  Company Number: JP-BAXTER-2009BH019732

PATIENT
  Age: 29 Year
  Sex: Female
  Weight: 53 kg

DRUGS (2)
  1. EXTRANEAL [Suspect]
     Indication: NEPHROSCLEROSIS
     Route: 033
     Dates: end: 20090909
  2. DIANEAL LOW CALCIUM W/ DEXTROSE 1.5% [Suspect]
     Indication: NEPHROSCLEROSIS
     Route: 033

REACTIONS (2)
  - HAEMATEMESIS [None]
  - OESOPHAGEAL VARICES HAEMORRHAGE [None]
